FAERS Safety Report 19515097 (Version 1)
Quarter: 2021Q3

REPORT INFORMATION
  Report Type: Spontaneous
  Country: JP (occurrence: JP)
  Receive Date: 20210709
  Receipt Date: 20210709
  Transmission Date: 20211014
  Serious: Yes (Other)
  Sender: FDA-Public Use
  Company Number: JP-GLAXOSMITHKLINE-JP2021JPN146879

PATIENT
  Age: 3 Year
  Sex: Male

DRUGS (1)
  1. FLOLAN [Suspect]
     Active Substance: EPOPROSTENOL SODIUM
     Indication: PULMONARY HYPERTENSION

REACTIONS (3)
  - Pulmonary veno-occlusive disease [Unknown]
  - Pulmonary congestion [Unknown]
  - Product use issue [Unknown]
